FAERS Safety Report 13677385 (Version 2)
Quarter: 2017Q3

REPORT INFORMATION
  Report Type: Spontaneous
  Country: US (occurrence: US)
  Receive Date: 20170622
  Receipt Date: 20170703
  Transmission Date: 20171127
  Serious: No
  Sender: FDA-Public Use
  Company Number: US-BAYER-2017-109816

PATIENT
  Age: 42 Year
  Sex: Male
  Weight: 37 kg

DRUGS (3)
  1. MIRALAX [Suspect]
     Active Substance: POLYETHYLENE GLYCOL 3350
     Indication: GASTROINTESTINAL DISORDER
     Dosage: 1 DF, UNK
     Route: 048
     Dates: start: 201412, end: 20160601
  2. MIRALAX [Suspect]
     Active Substance: POLYETHYLENE GLYCOL 3350
     Indication: GASTROINTESTINAL DISORDER
     Dosage: UNK
     Route: 065
     Dates: start: 201512
  3. KEPPRA [Concomitant]
     Active Substance: LEVETIRACETAM

REACTIONS (10)
  - Muscle spasms [Unknown]
  - Inappropriate prescribing [Unknown]
  - Incorrect dosage administered [Unknown]
  - Foaming at mouth [Unknown]
  - Incorrect dosage administered [Unknown]
  - Drug ineffective [Unknown]
  - Muscle spasms [Unknown]
  - Inappropriate prescribing [Unknown]
  - Heart rate increased [Unknown]
  - Pain [Unknown]

NARRATIVE: CASE EVENT DATE: 201412
